FAERS Safety Report 9387626 (Version 1)
Quarter: 2013Q3

REPORT INFORMATION
  Report Type: Spontaneous
  Country: US (occurrence: US)
  Receive Date: 20130708
  Receipt Date: 20130708
  Transmission Date: 20140515
  Serious: Yes (Other)
  Sender: FDA-Public Use
  Company Number: US-JNJFOC-20130704426

PATIENT
  Sex: 0

DRUGS (10)
  1. DOXORUBICIN [Suspect]
     Indication: PERIPHERAL T-CELL LYMPHOMA UNSPECIFIED
     Dosage: LESS THAN OR EQUAL TO 6-8 CYCLES, ON DAY 3
     Route: 042
  2. ONTAK [Suspect]
     Indication: PERIPHERAL T-CELL LYMPHOMA UNSPECIFIED
     Dosage: DAYS 1, 2, EVERY 21 DAYS, LESS THAN OR EQUAL TO 6-8 CYCLES
     Route: 042
  3. CYCLOPHOSPHAMIDE [Suspect]
     Indication: PERIPHERAL T-CELL LYMPHOMA UNSPECIFIED
     Dosage: LESS THAN OR EQUAL TO 6-8 CYCLES, ON DAY 3
     Route: 042
  4. VINCRISTINE [Suspect]
     Indication: PERIPHERAL T-CELL LYMPHOMA UNSPECIFIED
     Dosage: LESS THAN OR EQUAL TO 6-8 CYCLES, ON DAY 3
     Route: 042
  5. PREDNISONE [Suspect]
     Indication: PERIPHERAL T-CELL LYMPHOMA UNSPECIFIED
     Dosage: LESS THAN OR EQUAL TO 6-8 CYCLES, ON DAY 3-7
     Route: 048
  6. DEXAMETHASONE [Concomitant]
     Indication: PREMEDICATION
     Dosage: 4-8 MG
     Route: 042
  7. ACETAMINOPHEN [Concomitant]
     Indication: PREMEDICATION
     Dosage: 4-8 MG
     Route: 048
  8. DIPHENHYDRAMINE [Concomitant]
     Indication: PREMEDICATION
     Dosage: 4-8 MG
     Route: 042
  9. GRANULOCYTE COLONY-STIMULATING FACTOR [Concomitant]
     Indication: PROPHYLAXIS
     Dosage: 4-8 MG
     Route: 065
  10. DEXAMETHASONE [Concomitant]
     Indication: PREMEDICATION
     Dosage: 4-8 MG
     Route: 048

REACTIONS (2)
  - Pneumonitis [Unknown]
  - Dyspnoea [Unknown]
